FAERS Safety Report 7170086-2 (Version None)
Quarter: 2010Q4

REPORT INFORMATION
  Report Type: 
  Country: None (occurrence: None)
  Receive Date: 20101214
  Receipt Date: 20101214
  Transmission Date: 20110411
  Serious: Yes (Disabling)
  Sender: FDA-Public Use
  Company Number: None

PATIENT
  Sex: Female
  Weight: 55.3388 kg

DRUGS (1)
  1. LEVAQUIN [Suspect]
     Indication: URINARY TRACT INFECTION
     Dosage: 500 MG. 1 A DAY
     Dates: start: 20100627, end: 20100701

REACTIONS (5)
  - BALANCE DISORDER [None]
  - JOINT SWELLING [None]
  - MOBILITY DECREASED [None]
  - OEDEMA PERIPHERAL [None]
  - TENDON PAIN [None]
